FAERS Safety Report 15191844 (Version 3)
Quarter: 2018Q3

REPORT INFORMATION
  Report Type: Report from Study
  Country: US (occurrence: US)
  Receive Date: 20180724
  Receipt Date: 20180907
  Transmission Date: 20181010
  Serious: Yes (Hospitalization)
  Sender: FDA-Public Use
  Company Number: US-ACTELION-A-NJ2018-165550

PATIENT
  Age: 58 Year
  Sex: Male
  Weight: 78.91 kg

DRUGS (2)
  1. UPTRAVI [Suspect]
     Active Substance: SELEXIPAG
     Indication: PULMONARY ARTERIAL HYPERTENSION
     Dosage: 1600 MCG, BID
     Route: 048
     Dates: end: 2018
  2. REVATIO [Concomitant]
     Active Substance: SILDENAFIL CITRATE

REACTIONS (11)
  - Weight decreased [Unknown]
  - Ageusia [Unknown]
  - Malaise [Unknown]
  - Dysarthria [Unknown]
  - Anosmia [Unknown]
  - Chest discomfort [Unknown]
  - Feeling abnormal [Unknown]
  - Pulmonary oedema [Unknown]
  - Cerebrovascular accident [Unknown]
  - Paraesthesia [Unknown]
  - Anxiety [Unknown]

NARRATIVE: CASE EVENT DATE: 2018
